FAERS Safety Report 16585528 (Version 1)
Quarter: 2019Q3

REPORT INFORMATION
  Report Type: Report from Study
  Country: None (occurrence: US)
  Receive Date: 20190717
  Receipt Date: 20190717
  Transmission Date: 20191004
  Serious: Yes (Hospitalization)
  Sender: FDA-Public Use
  Company Number: US-ABBVIE-19K-163-2809079-00

PATIENT
  Age: 28 Year
  Sex: Female

DRUGS (1)
  1. HUMIRA [Suspect]
     Active Substance: ADALIMUMAB
     Indication: COLITIS ULCERATIVE
     Route: 058
     Dates: start: 20190531

REACTIONS (10)
  - Streptococcal infection [Unknown]
  - Viral infection [Recovering/Resolving]
  - Pain [Unknown]
  - Eye infection viral [Unknown]
  - Wrong technique in product usage process [Unknown]
  - Nephrolithiasis [Unknown]
  - Malaise [Unknown]
  - Tachycardia [Unknown]
  - Hypotension [Unknown]
  - Urinary tract infection [Unknown]

NARRATIVE: CASE EVENT DATE: 2019
